FAERS Safety Report 15580736 (Version 1)
Quarter: 2018Q4

REPORT INFORMATION
  Report Type: Spontaneous
  Country: US (occurrence: US)
  Receive Date: 20181104
  Receipt Date: 20181104
  Transmission Date: 20190205
  Serious: Yes (Life-Threatening, Other)
  Sender: FDA-Public Use
  Company Number: None

PATIENT
  Age: 50 Year
  Sex: Female
  Weight: 65.25 kg

DRUGS (17)
  1. HYDROCHLOROTHIAZIDE. [Suspect]
     Active Substance: HYDROCHLOROTHIAZIDE
     Indication: OEDEMA
     Dosage: ?          QUANTITY:1 TABLET(S);?
     Route: 048
     Dates: start: 20180926, end: 20181004
  2. FLONASE [Concomitant]
     Active Substance: FLUTICASONE PROPIONATE
  3. GLUCOSAMINE CHONDROITIN [Concomitant]
     Active Substance: CHONDROITIN SULFATE (BOVINE)\GLUCOSAMINE HYDROCHLORIDE
  4. VITAMIN E [Concomitant]
     Active Substance: .ALPHA.-TOCOPHEROL
  5. PHENTERMINE. [Concomitant]
     Active Substance: PHENTERMINE
  6. MINERAL OIL. [Concomitant]
     Active Substance: MINERAL OIL
  7. TRAZODONE [Concomitant]
     Active Substance: TRAZODONE HYDROCHLORIDE
  8. TUMS [Concomitant]
     Active Substance: CALCIUM CARBONATE
  9. MAGNESIUM [Concomitant]
     Active Substance: MAGNESIUM
  10. SOY ISOFLAVONES [Concomitant]
     Active Substance: SOY ISOFLAVONES
  11. MELOXICAM. [Concomitant]
     Active Substance: MELOXICAM
  12. LORATADINE. [Concomitant]
     Active Substance: LORATADINE
  13. ONE-A-DAY MULTI VITAMIN FOR WOMEN [Concomitant]
  14. VITAMIN D [Concomitant]
     Active Substance: CHOLECALCIFEROL
  15. BLACK COHOSH [Concomitant]
     Active Substance: BLACK COHOSH
  16. OMEGA 3 FISH OIL [Concomitant]
     Active Substance: FISH OIL\OMEGA-3 FATTY ACIDS
  17. VITAMIN C [Concomitant]
     Active Substance: ASCORBIC ACID

REACTIONS (25)
  - Dyspnoea [None]
  - Dysphagia [None]
  - Asthenia [None]
  - Dysstasia [None]
  - Swelling [None]
  - Abdominal distension [None]
  - Cold sweat [None]
  - Confusional state [None]
  - Limb discomfort [None]
  - Hyponatraemia [None]
  - Balance disorder [None]
  - Tremor [None]
  - Vision blurred [None]
  - Rash [None]
  - Pancreatitis [None]
  - Head discomfort [None]
  - Paraesthesia oral [None]
  - Vertigo [None]
  - Blood pressure increased [None]
  - Chest discomfort [None]
  - Chills [None]
  - Pollakiuria [None]
  - Dry mouth [None]
  - Thirst [None]
  - Syncope [None]

NARRATIVE: CASE EVENT DATE: 20181004
